FAERS Safety Report 13232772 (Version 2)
Quarter: 2017Q1

REPORT INFORMATION
  Report Type: Report from Study
  Country: US (occurrence: US)
  Receive Date: 20170214
  Receipt Date: 20170222
  Transmission Date: 20170428
  Serious: Yes (Death, Hospitalization, Other)
  Sender: FDA-Public Use
  Company Number: US-009507513-1702USA006255

PATIENT
  Age: 67 Year
  Sex: Male

DRUGS (1)
  1. JANUVIA [Suspect]
     Active Substance: SITAGLIPTIN PHOSPHATE
     Indication: TYPE 2 DIABETES MELLITUS
     Dosage: 50 MG, QD
     Route: 048

REACTIONS (3)
  - Death [Fatal]
  - Incorrect dose administered [Unknown]
  - Adverse event [Unknown]

NARRATIVE: CASE EVENT DATE: 20170126
